FAERS Safety Report 9740133 (Version 1)
Quarter: 2013Q4

REPORT INFORMATION
  Report Type: Spontaneous
  Country: US (occurrence: US)
  Receive Date: 20131209
  Receipt Date: 20131209
  Transmission Date: 20140711
  Serious: No
  Sender: FDA-Public Use
  Company Number: US-BAYER-2013-148347

PATIENT
  Age: 53 Year
  Sex: Female
  Weight: 227 kg

DRUGS (2)
  1. ALEVE CAPLET [Suspect]
     Indication: ANALGESIC THERAPY
     Dosage: 3-4 DF PRN
     Route: 048
  2. GABAPENTIN [Concomitant]

REACTIONS (3)
  - Somnolence [Recovered/Resolved]
  - Incorrect dose administered [None]
  - Drug administration error [None]
